FAERS Safety Report 7920423-3 (Version None)
Quarter: 2011Q4

REPORT INFORMATION
  Report Type: 
  Country: None (occurrence: None)
  Receive Date: 20111117
  Receipt Date: 20111107
  Transmission Date: 20120403
  Serious: Yes (Hospitalization, Other)
  Sender: FDA-Public Use
  Company Number: PHHY2011CA27489

PATIENT
  Sex: Male

DRUGS (1)
  1. SANDOSTATIN LAR [Suspect]
     Indication: NEUROENDOCRINE TUMOUR
     Dosage: 20 MG, QMO
     Route: 030
     Dates: start: 20110228

REACTIONS (16)
  - LETHARGY [None]
  - ABDOMINAL MASS [None]
  - WEIGHT DECREASED [None]
  - ABDOMINAL PAIN [None]
  - CONFUSIONAL STATE [None]
  - HEART RATE DECREASED [None]
  - BLOOD PRESSURE INCREASED [None]
  - PAIN IN EXTREMITY [None]
  - CARDIAC FAILURE CONGESTIVE [None]
  - URINARY INCONTINENCE [None]
  - JOINT SWELLING [None]
  - DECREASED APPETITE [None]
  - BILE DUCT OBSTRUCTION [None]
  - JAUNDICE [None]
  - FATIGUE [None]
  - URINE COLOUR ABNORMAL [None]
